FAERS Safety Report 6490058-0 (Version None)
Quarter: 2009Q4

REPORT INFORMATION
  Report Type: 
  Country: None (occurrence: None)
  Receive Date: 20091211
  Receipt Date: 20081113
  Transmission Date: 20100525
  Serious: No
  Sender: FDA-Public Use
  Company Number: A0755427A

PATIENT
  Age: 84 Year
  Sex: Female

DRUGS (14)
  1. FLONASE [Suspect]
     Dosage: 2SPR PER DAY
     Route: 045
     Dates: start: 20080101, end: 20080101
  2. LEVOXYL [Concomitant]
  3. NEXIUM [Concomitant]
  4. ATENOLOL [Concomitant]
  5. PLAVIX [Concomitant]
  6. LISINOPRIL [Concomitant]
  7. LIPITOR [Concomitant]
  8. ASPIRIN [Concomitant]
  9. NORVASC [Concomitant]
  10. NITROGLYCERIN [Concomitant]
  11. CLIDINIUM BROMIDE+CHLORDIAZEPOXIDE [Concomitant]
  12. POTASSIUM [Concomitant]
  13. MAGNESIUM [Concomitant]
  14. CALCIUM [Concomitant]

REACTIONS (1)
  - DRUG INEFFECTIVE [None]
